FAERS Safety Report 21020630 (Version 1)
Quarter: 2022Q2

REPORT INFORMATION
  Report Type: Spontaneous
  Country: DE (occurrence: DE)
  Receive Date: 20220629
  Receipt Date: 20220629
  Transmission Date: 20220720
  Serious: Yes (Other)
  Sender: FDA-Public Use
  Company Number: DE-009507513-2206DEU003360

PATIENT
  Age: 82 Year
  Sex: Male
  Weight: 81 kg

DRUGS (7)
  1. PREDNISOLONE [Suspect]
     Active Substance: PREDNISOLONE
     Indication: Cataract operation
     Dosage: ACCORDING TO SCHEMA
     Route: 061
     Dates: start: 20220425, end: 20220606
  2. METFORMIN\SITAGLIPTIN [Suspect]
     Active Substance: METFORMIN\SITAGLIPTIN
     Indication: Diabetes mellitus
     Dosage: 50MG/1000 MG, 1 TABLET IN 1 DAY (1-0-0)
     Route: 048
     Dates: start: 2020, end: 20220202
  3. METFORMIN\SITAGLIPTIN [Suspect]
     Active Substance: METFORMIN\SITAGLIPTIN
     Dosage: 50MG/1000 MG, 2 TABLETS IN 1 DAY (1-0-1)
     Route: 048
     Dates: start: 20220202
  4. LEVOTHYROXINE SODIUM\POTASSIUM IODIDE [Concomitant]
     Active Substance: LEVOTHYROXINE SODIUM\POTASSIUM IODIDE
     Indication: Goitre
     Dosage: 100 (UNITS NOT PROVIDED), 1-0-0, 1 IN 1 DAY
     Route: 048
  5. JARDIANCE [Concomitant]
     Active Substance: EMPAGLIFLOZIN
     Indication: Diabetes mellitus
     Dosage: UNK
     Dates: start: 202101
  6. HYDROCHLOROTHIAZIDE\LOSARTAN [Concomitant]
     Active Substance: HYDROCHLOROTHIAZIDE\LOSARTAN
     Indication: Hypertension
     Dosage: 5 MG/12.5 MG (ALSO REPORTED AS 50MG/12.5MG) (1-0-0), 1 TABLET IN 1 DAY
  7. GENTAMICIN [Concomitant]
     Active Substance: GENTAMICIN
     Indication: Cataract operation
     Dosage: ACCORDING TO SCHEMA AT NIGHT, DOSE : 1 (UNIT UNSPECIFIED)
     Route: 061
     Dates: start: 20220425, end: 20220606

REACTIONS (8)
  - Retinal haemorrhage [Not Recovered/Not Resolved]
  - Diabetes mellitus [Unknown]
  - Visual impairment [Not Recovered/Not Resolved]
  - Neovascular age-related macular degeneration [Not Recovered/Not Resolved]
  - Cataract [Unknown]
  - Drug interaction [Unknown]
  - Stress [Unknown]
  - Incorrect dose administered [Unknown]

NARRATIVE: CASE EVENT DATE: 20200101
